FAERS Safety Report 5719080-6 (Version None)
Quarter: 2008Q2

REPORT INFORMATION
  Report Type: 
  Country: None (occurrence: None)
  Receive Date: 20080423
  Receipt Date: 20080409
  Transmission Date: 20081010
  Serious: Yes (Other)
  Sender: FDA-Public Use
  Company Number: 2008S1005837

PATIENT
  Sex: Female

DRUGS (2)
  1. WARFARIN SODIUM [Suspect]
     Indication: MITRAL VALVE REPLACEMENT
     Dosage: TRANSPLACENTAL
     Route: 064
  2. ENOXAPARIN SODIUM [Concomitant]

REACTIONS (5)
  - CEREBRAL ATROPHY CONGENITAL [None]
  - DRUG EXPOSURE DURING PREGNANCY [None]
  - HAEMORRHAGE INTRACRANIAL [None]
  - MUSCULAR WEAKNESS [None]
  - PORENCEPHALY [None]
